FAERS Safety Report 20790680 (Version 1)
Quarter: 2022Q2

REPORT INFORMATION
  Report Type: Spontaneous
  Country: US (occurrence: None)
  Receive Date: 20220505
  Receipt Date: 20220505
  Transmission Date: 20220721
  Serious: Yes (Hospitalization)
  Sender: FDA-Public Use
  Company Number: None

PATIENT
  Age: 72 Year
  Sex: Male
  Weight: 58.5 kg

DRUGS (1)
  1. FLUCICLOVINE F-18 [Suspect]
     Active Substance: FLUCICLOVINE F-18
     Indication: Bladder cancer
     Dosage: OTHER FREQUENCY : SINGLE DOSE;?
     Route: 042
     Dates: start: 20220428, end: 20220428

REACTIONS (7)
  - Malaise [None]
  - Dehydration [None]
  - Tachycardia [None]
  - Urinary tract infection [None]
  - Blood creatinine increased [None]
  - Urine leukocyte esterase positive [None]
  - Bacterial test positive [None]

NARRATIVE: CASE EVENT DATE: 20220428
